FAERS Safety Report 5724391-4 (Version None)
Quarter: 2008Q2

REPORT INFORMATION
  Report Type: 
  Country: None (occurrence: None)
  Receive Date: 20080429
  Receipt Date: 20080415
  Transmission Date: 20081010
  Serious: Yes (Other)
  Sender: FDA-Public Use
  Company Number: S08-FRA-01558-01

PATIENT
  Age: 60 Year
  Sex: Female

DRUGS (2)
  1. ESCITALOPRAM [Suspect]
     Dosage: 10 MG QD;PO
     Route: 048
     Dates: start: 20080405
  2. ATARAX [Concomitant]

REACTIONS (1)
  - BUNDLE BRANCH BLOCK LEFT [None]
